FAERS Safety Report 14627658 (Version 4)
Quarter: 2019Q4

REPORT INFORMATION
  Report Type: Spontaneous
  Country: US (occurrence: US)
  Receive Date: 20180312
  Receipt Date: 20191001
  Transmission Date: 20200122
  Serious: Yes (Hospitalization)
  Sender: FDA-Public Use
  Company Number: US-GE HEALTHCARE LIFE SCIENCES-2018CSU000956

PATIENT
  Age: 50 Year
  Sex: Male
  Weight: 129.2 kg

DRUGS (14)
  1. LISINOPRIL. [Concomitant]
     Active Substance: LISINOPRIL
  2. LUNESTA [Concomitant]
     Active Substance: ESZOPICLONE
  3. LITHIUM. [Concomitant]
     Active Substance: LITHIUM
  4. LIDOCAINE. [Concomitant]
     Active Substance: LIDOCAINE
     Dosage: UNK, SINGLE
     Route: 014
     Dates: start: 20180206, end: 20180206
  5. VISTARIL                           /00058402/ [Concomitant]
     Active Substance: HYDROXYZINE HYDROCHLORIDE
  6. PREDNISONE. [Concomitant]
     Active Substance: PREDNISONE
  7. OMNIPAQUE [Suspect]
     Active Substance: IOHEXOL
     Indication: PRODUCT USED FOR UNKNOWN INDICATION
     Dosage: 10 ML, SINGLE
     Route: 014
     Dates: start: 20180206, end: 20180206
  8. MARCAINE [Concomitant]
     Active Substance: BUPIVACAINE HYDROCHLORIDE
     Dosage: UNK
     Route: 014
     Dates: start: 20180206
  9. GLIPIZIDE. [Concomitant]
     Active Substance: GLIPIZIDE
  10. AMLODIPINE [Concomitant]
     Active Substance: AMLODIPINE BESYLATE
  11. MOTRIN [Concomitant]
     Active Substance: IBUPROFEN
  12. METFORMIN [Concomitant]
     Active Substance: METFORMIN HYDROCHLORIDE
  13. DEPO-MEDROL [Concomitant]
     Active Substance: METHYLPREDNISOLONE ACETATE
     Dosage: UNK, SINGLE
     Route: 014
     Dates: start: 20180206, end: 20180206
  14. ALEVE [Concomitant]
     Active Substance: NAPROXEN SODIUM

REACTIONS (2)
  - Off label use [Recovered/Resolved]
  - Arthritis infective [Recovering/Resolving]

NARRATIVE: CASE EVENT DATE: 20180206
